FAERS Safety Report 22089084 (Version 1)
Quarter: 2023Q1

REPORT INFORMATION
  Report Type: Report from Study
  Country: CO (occurrence: CO)
  Receive Date: 20230313
  Receipt Date: 20230313
  Transmission Date: 20230418
  Serious: Yes (Death, Hospitalization, Other)
  Sender: FDA-Public Use
  Company Number: CO-ABBVIE-4335878

PATIENT
  Age: 83 Year
  Sex: Male

DRUGS (1)
  1. VENCLEXTA [Suspect]
     Active Substance: VENETOCLAX
     Indication: Chronic lymphocytic leukaemia
     Dosage: 400 MILLIGRAM
     Route: 048
     Dates: start: 20211125, end: 20221013

REACTIONS (10)
  - Cardio-respiratory arrest [Fatal]
  - Pneumonia [Not Recovered/Not Resolved]
  - Metastases to prostate [Not Recovered/Not Resolved]
  - Metastases to thyroid [Not Recovered/Not Resolved]
  - Metastasis [Not Recovered/Not Resolved]
  - Blood calcium increased [Not Recovered/Not Resolved]
  - Lung disorder [Not Recovered/Not Resolved]
  - Renal cancer [Not Recovered/Not Resolved]
  - Malaise [Not Recovered/Not Resolved]
  - Renal neoplasm [Not Recovered/Not Resolved]

NARRATIVE: CASE EVENT DATE: 20221031
